FAERS Safety Report 10364666 (Version 3)
Quarter: 2014Q3

REPORT INFORMATION
  Report Type: Spontaneous
  Country: US (occurrence: None)
  Receive Date: 20140801
  Receipt Date: 20140925
  Transmission Date: 20150326
  Serious: Yes (Hospitalization)
  Sender: FDA-Public Use
  Company Number: UNT-2014-003259

PATIENT
  Age: 81 Year
  Sex: Male
  Weight: 93 kg

DRUGS (2)
  1. TYVASO [Suspect]
     Active Substance: TREPROSTINIL
     Indication: PULMONARY ARTERIAL HYPERTENSION
     Route: 055
     Dates: start: 20140114
  2. TRACLEER /01587701/ (BOSENTAN) [Concomitant]

REACTIONS (4)
  - Drug ineffective [None]
  - Pulmonary hypertension [None]
  - Cough [None]
  - Dyspnoea [None]

NARRATIVE: CASE EVENT DATE: 2014
